FAERS Safety Report 18149540 (Version 1)
Quarter: 2020Q3

REPORT INFORMATION
  Report Type: Report from Study
  Country: LB (occurrence: LB)
  Receive Date: 20200814
  Receipt Date: 20200814
  Transmission Date: 20201103
  Serious: Yes (Other)
  Sender: FDA-Public Use
  Company Number: LB-AUROBINDO-AUR-APL-2020-038499

PATIENT

DRUGS (6)
  1. SOTALOL. [Suspect]
     Active Substance: SOTALOL
     Indication: HYDROPS FOETALIS
     Dosage: 80 MILLIGRAM, TWO TIMES A DAY
     Route: 064
  2. FLECAINIDE [Suspect]
     Active Substance: FLECAINIDE
     Dosage: 200 MILLIGRAM, TWO TIMES A DAY
     Route: 064
  3. DIGOXIN. [Suspect]
     Active Substance: DIGOXIN
     Indication: HYDROPS FOETALIS
     Dosage: 0.25 MILLIGRAM, TWO TIMES A DAY
     Route: 064
  4. DIGOXIN. [Suspect]
     Active Substance: DIGOXIN
     Dosage: 0.5 MILLIGRAM, TWO TIMES A DAY
     Route: 064
  5. TAPAZOLE [Concomitant]
     Active Substance: METHIMAZOLE
     Indication: HYPERTHYROIDISM
     Dosage: UNK
     Route: 064
  6. FLECAINIDE [Suspect]
     Active Substance: FLECAINIDE
     Indication: HYDROPS FOETALIS
     Dosage: 100 MILLIGRAM, TWO TIMES A DAY
     Route: 064

REACTIONS (2)
  - Foetal exposure during pregnancy [Unknown]
  - Drug ineffective [Unknown]
